FAERS Safety Report 7314726-3 (Version None)
Quarter: 2011Q1

REPORT INFORMATION
  Report Type: 
  Country: None (occurrence: None)
  Receive Date: 20110225
  Receipt Date: 20110104
  Transmission Date: 20110831
  Serious: No
  Sender: FDA-Public Use
  Company Number: US-MYLANLABS-2010S1021300

PATIENT
  Age: 18 Year
  Sex: Female

DRUGS (3)
  1. DEPO-PROVERA [Concomitant]
  2. AMNESTEEM [Suspect]
     Indication: ACNE
     Route: 048
     Dates: start: 20100716, end: 20100816
  3. AMNESTEEM [Suspect]
     Route: 048
     Dates: start: 20100916, end: 20101116

REACTIONS (2)
  - CHEST DISCOMFORT [None]
  - DYSPNOEA EXERTIONAL [None]
